FAERS Safety Report 15841292 (Version 1)
Quarter: 2019Q1

REPORT INFORMATION
  Report Type: Spontaneous
  Country: DE (occurrence: DE)
  Receive Date: 20190118
  Receipt Date: 20190118
  Transmission Date: 20190417
  Serious: Yes (Hospitalization)
  Sender: FDA-Public Use
  Company Number: DE-ABBVIE-19K-062-2626250-00

PATIENT
  Age: 48 Year
  Sex: Male

DRUGS (5)
  1. PENTASA [Concomitant]
     Active Substance: MESALAMINE
  2. PENTASA [Concomitant]
     Active Substance: MESALAMINE
     Indication: COLITIS ULCERATIVE
  3. HUMIRA [Suspect]
     Active Substance: ADALIMUMAB
     Indication: COLITIS ULCERATIVE
     Route: 058
  4. HUMIRA [Suspect]
     Active Substance: ADALIMUMAB
     Dosage: TWO WEEKS AFTER INITIAL DOSE
     Route: 058
  5. PENTASA [Concomitant]
     Active Substance: MESALAMINE

REACTIONS (10)
  - Fluid retention [Recovering/Resolving]
  - Influenza like illness [Recovering/Resolving]
  - Fatigue [Recovering/Resolving]
  - Painful respiration [Recovering/Resolving]
  - Pain in extremity [Recovering/Resolving]
  - Pulmonary function test abnormal [Recovering/Resolving]
  - Colitis ulcerative [Recovering/Resolving]
  - Restlessness [Recovering/Resolving]
  - Chest pain [Recovering/Resolving]
  - Skin hypertrophy [Recovering/Resolving]
